FAERS Safety Report 5871202-2 (Version None)
Quarter: 2008Q3

REPORT INFORMATION
  Report Type: 
  Country: None (occurrence: None)
  Receive Date: 20080829
  Receipt Date: 20080815
  Transmission Date: 20090109
  Serious: Yes (Hospitalization, Other)
  Sender: FDA-Public Use
  Company Number: L07-UKI-05193-01

PATIENT
  Age: 76 Year
  Sex: Female

DRUGS (6)
  1. ESCITALOPRAM [Suspect]
     Indication: DEPRESSION
     Dosage: 10 MG (10 MG), ORAL
     Route: 048
  2. PROPRANOLOL [Suspect]
     Indication: ESSENTIAL TREMOR
     Dosage: 80 MG (80 MG, D)
  3. DONEPEZIL HCL [Suspect]
     Indication: DEMENTIA ALZHEIMER'S TYPE
     Dosage: 10 MG (10 MG, D)
  4. OMEPRAZOLE [Suspect]
     Dosage: 20 MG (20 MG)
  5. FERROUS SULFATE TAB [Concomitant]
  6. PROCHLORPERAZINE [Concomitant]

REACTIONS (5)
  - BLOOD PRESSURE INCREASED [None]
  - POTENTIATING DRUG INTERACTION [None]
  - SINUS BRADYCARDIA [None]
  - TORSADE DE POINTES [None]
  - VENTRICULAR TACHYCARDIA [None]
